FAERS Safety Report 9675056 (Version 4)
Quarter: 2014Q1

REPORT INFORMATION
  Report Type: Spontaneous
  Country: US (occurrence: None)
  Receive Date: 20131105
  Receipt Date: 20140224
  Transmission Date: 20141002
  Serious: Yes (Other)
  Sender: FDA-Public Use
  Company Number: 2013P1020480

PATIENT
  Age: 59 Year
  Sex: Male
  Weight: 77.11 kg

DRUGS (16)
  1. URSODIOL [Suspect]
     Indication: RESTLESS LEGS SYNDROME
     Route: 048
     Dates: start: 1990
  2. CYCLOSPORINE [Suspect]
     Dates: start: 2000
  3. PROGRAF [Suspect]
  4. GABAPENTIN [Concomitant]
  5. SULFAMETH [Concomitant]
  6. TRIMETHOPRIM [Concomitant]
  7. LOVASTATIN [Concomitant]
  8. AMITRIPTYLINE [Concomitant]
  9. CITALOPRAM [Concomitant]
  10. METOPROLOL [Concomitant]
  11. OXYCONTIN [Concomitant]
  12. CELEXA [Concomitant]
  13. SOMA [Concomitant]
  14. PREDNISONE [Concomitant]
  15. THREE UNSPEICIFIED ANTIBIOTICS [Concomitant]
  16. HIGH-DOSE STEROIDS [Suspect]
     Indication: LIVER TRANSPLANT REJECTION

REACTIONS (11)
  - Liver transplant [None]
  - Hallucination [None]
  - Diabetes mellitus [None]
  - Foreign body [None]
  - Hypertension [None]
  - Heart rate increased [None]
  - Drug effect decreased [None]
  - Gallbladder disorder [None]
  - Cholangitis sclerosing [None]
  - Confusional state [None]
  - Hepatic encephalopathy [None]
